FAERS Safety Report 5012261-9 (Version None)
Quarter: 2006Q2

REPORT INFORMATION
  Report Type: 
  Country: None (occurrence: None)
  Receive Date: 20060524
  Receipt Date: 20060520
  Transmission Date: 20061013
  Serious: Yes (Hospitalization)
  Sender: FDA-Public Use
  Company Number: 223259

PATIENT
  Age: 61 Year
  Sex: Female

DRUGS (4)
  1. AVASTIN [Suspect]
     Indication: COLORECTAL CANCER
     Dosage: 5 MG/KG, INTRAVENOUS
     Route: 042
     Dates: start: 20051115
  2. IRINOTECAN HCL [Suspect]
     Indication: COLORECTAL CANCER
     Dosage: 80 MG/M2, INTRAVENOUS
     Route: 042
     Dates: start: 20051115
  3. FLUOROURACIL [Suspect]
     Indication: COLORECTAL CANCER
     Dosage: 2300 MG/M2, INTRAVENOUS
     Route: 042
     Dates: start: 20051115
  4. FOLINAT (LEUCOVORIN CALCIUM) [Suspect]
     Indication: COLORECTAL CANCER
     Dosage: 480 MG/M2,
     Dates: start: 20051115

REACTIONS (4)
  - ABDOMINAL PAIN UPPER [None]
  - BLOOD BILIRUBIN INCREASED [None]
  - GENERAL PHYSICAL HEALTH DETERIORATION [None]
  - VOMITING [None]
